FAERS Safety Report 18948907 (Version 1)
Quarter: 2021Q1

REPORT INFORMATION
  Report Type: Spontaneous
  Country: US (occurrence: US)
  Receive Date: 20210227
  Receipt Date: 20210227
  Transmission Date: 20210420
  Serious: Yes (Hospitalization)
  Sender: FDA-Public Use
  Company Number: US-TORRENT-00010793

PATIENT
  Age: 51 Year
  Sex: Male

DRUGS (2)
  1. PREDNISONE. [Suspect]
     Active Substance: PREDNISONE
     Indication: VIRAL LABYRINTHITIS
     Dosage: UNKNOWN
  2. ACICLOVIR [Suspect]
     Active Substance: ACYCLOVIR
     Indication: VIRAL LABYRINTHITIS
     Dosage: UNKNOWN

REACTIONS (1)
  - Condition aggravated [Not Recovered/Not Resolved]
